FAERS Safety Report 15152011 (Version 1)
Quarter: 2018Q3

REPORT INFORMATION
  Report Type: Report from Study
  Country: None (occurrence: LK)
  Receive Date: 20180717
  Receipt Date: 20180717
  Transmission Date: 20181010
  Serious: Yes (Congenital Anomaly, Other)
  Sender: FDA-Public Use
  Company Number: LK-UNICHEM PHARMACEUTICALS (USA) INC-UCM201807-000158

PATIENT

DRUGS (2)
  1. CARBAMAZEPINE. [Suspect]
     Active Substance: CARBAMAZEPINE
  2. LAMOTRIGINE. [Suspect]
     Active Substance: LAMOTRIGINE

REACTIONS (2)
  - Renal hypoplasia [Unknown]
  - Foetal exposure during pregnancy [Unknown]
